FAERS Safety Report 5127391-0 (Version None)
Quarter: 2006Q4

REPORT INFORMATION
  Report Type: 
  Country: None (occurrence: None)
  Receive Date: 20061013
  Receipt Date: 20061013
  Transmission Date: 20070319
  Serious: Yes (Other)
  Sender: FDA-Public Use
  Company Number: None

PATIENT
  Age: 38 Year
  Sex: Female
  Weight: 63.9572 kg

DRUGS (1)
  1. CONJUGATED ESTROGENS [Suspect]
     Indication: HYSTERECTOMY
     Dosage: 1 TABLET DAILY PO
     Route: 048
     Dates: start: 20060201, end: 20060410

REACTIONS (7)
  - ANGER [None]
  - FEELING ABNORMAL [None]
  - ILL-DEFINED DISORDER [None]
  - MENTAL DISORDER [None]
  - SELF INJURIOUS BEHAVIOUR [None]
  - SOCIAL AVOIDANT BEHAVIOUR [None]
  - WEIGHT INCREASED [None]
